FAERS Safety Report 8605882-5 (Version None)
Quarter: 2012Q3

REPORT INFORMATION
  Report Type: 
  Country: None (occurrence: None)
  Receive Date: 20120820
  Receipt Date: 20120810
  Transmission Date: 20120928
  Serious: Yes (Hospitalization, Congenital Anomaly)
  Sender: FDA-Public Use
  Company Number: US-GLAXOSMITHKLINE-A0990119A

PATIENT
  Sex: Male

DRUGS (4)
  1. MULTI-VITAMINS [Concomitant]
     Route: 064
  2. PROGESTERONE [Concomitant]
     Route: 064
  3. PAXIL [Suspect]
     Indication: DEPRESSION
     Route: 064
  4. PHENERGAN HCL [Concomitant]
     Route: 064

REACTIONS (4)
  - PULMONARY ARTERY STENOSIS CONGENITAL [None]
  - FOETAL EXPOSURE DURING PREGNANCY [None]
  - TRICUSPID VALVE INCOMPETENCE [None]
  - ATRIAL SEPTAL DEFECT [None]
